FAERS Safety Report 5316914-4 (Version None)
Quarter: 2007Q2

REPORT INFORMATION
  Report Type: 
  Country: None (occurrence: None)
  Receive Date: 20070504
  Receipt Date: 20070503
  Transmission Date: 20071010
  Serious: Yes (Hospitalization)
  Sender: FDA-Public Use
  Company Number: FR-GLAXOSMITHKLINE-B0469144A

PATIENT
  Age: 69 Year
  Sex: Male

DRUGS (2)
  1. FORTUM [Suspect]
     Indication: PSEUDOMONAS INFECTION
     Route: 065
     Dates: start: 20070308, end: 20070312
  2. AMIKLIN [Concomitant]
     Indication: PSEUDOMONAS INFECTION
     Route: 065
     Dates: start: 20070308

REACTIONS (5)
  - AGRANULOCYTOSIS [None]
  - ERYTHEMA [None]
  - NEUTROPENIA [None]
  - PRURIGO [None]
  - RASH MACULO-PAPULAR [None]
